FAERS Safety Report 19649066 (Version 1)
Quarter: 2021Q3

REPORT INFORMATION
  Report Type: Spontaneous
  Country: CN (occurrence: CN)
  Receive Date: 20210803
  Receipt Date: 20210803
  Transmission Date: 20211014
  Serious: Yes (Hospitalization, Other)
  Sender: FDA-Public Use
  Company Number: CN-009507513-2108CHN000470

PATIENT
  Age: 51 Year
  Weight: 40 kg

DRUGS (4)
  1. JANUVIA [Suspect]
     Active Substance: SITAGLIPTIN PHOSPHATE
     Indication: BLOOD GLUCOSE ABNORMAL
     Dosage: 100 MILLIGRAM, QD
     Route: 048
     Dates: start: 20190520, end: 20210720
  2. NOVONORM [Suspect]
     Active Substance: REPAGLINIDE
     Indication: BLOOD GLUCOSE ABNORMAL
     Dosage: 1 MILLIGRAM, TID
     Route: 048
     Dates: start: 20190520, end: 20210720
  3. ACARBOSE. [Suspect]
     Active Substance: ACARBOSE
     Indication: BLOOD GLUCOSE ABNORMAL
     Dosage: 100 MILLIGRAM, TID
     Route: 048
     Dates: start: 20190520, end: 20210701
  4. ACARBOSE. [Suspect]
     Active Substance: ACARBOSE
     Indication: BLOOD GLUCOSE ABNORMAL
     Dosage: 100 MILLIGRAM, TID
     Route: 048
     Dates: start: 20210702, end: 20210720

REACTIONS (2)
  - Hypoglycaemic coma [Recovering/Resolving]
  - Blood potassium abnormal [Unknown]

NARRATIVE: CASE EVENT DATE: 20210721
